FAERS Safety Report 24051614 (Version 1)
Quarter: 2024Q3

REPORT INFORMATION
  Report Type: Spontaneous
  Country: DE (occurrence: DE)
  Receive Date: 20240704
  Receipt Date: 20240704
  Transmission Date: 20241016
  Serious: Yes (Other)
  Sender: PFIZER
  Company Number: DE-ABBVIE-5817790

PATIENT
  Age: 36 Year
  Sex: Female
  Weight: 89 kg

DRUGS (10)
  1. METHOTREXATE SODIUM [Suspect]
     Active Substance: METHOTREXATE SODIUM
     Dosage: UNK
  2. HUMIRA [Suspect]
     Active Substance: ADALIMUMAB
     Indication: Colitis ulcerative
     Dosage: SINCE THEN 6 PENS
     Route: 058
     Dates: start: 202311
  3. PANTOPRAZOLE [Concomitant]
     Active Substance: PANTOPRAZOLE
     Dosage: 1-0-0-0 WHEN DICLOFENAC IS TAKEN
  4. PREDNISOLONE [Concomitant]
     Active Substance: PREDNISOLONE
     Dosage: 7.5 MG, EVERY 3 WEEKS
     Dates: start: 202401, end: 202401
  5. PREDNISOLONE [Concomitant]
     Active Substance: PREDNISOLONE
     Dosage: 5 MG
     Dates: start: 202401
  6. PREDNISOLONE [Concomitant]
     Active Substance: PREDNISOLONE
     Dosage: 7.5 MG/5 MG ALTERNATELY FOR 3 WEEKS
     Dates: start: 202401, end: 202401
  7. PREDNISOLONE [Concomitant]
     Active Substance: PREDNISOLONE
     Dosage: 10 MG/7.5 MG ALTERNATELY FOR 14 DAYS
     Dates: start: 202401, end: 202401
  8. CHOLECALCIFEROL [Concomitant]
     Active Substance: CHOLECALCIFEROL
     Dosage: 20000 IU, WEEKLY
  9. MESALAMINE [Concomitant]
     Active Substance: MESALAMINE
     Dosage: 1-0-0-0
  10. DICLOFENAC [Concomitant]
     Active Substance: DICLOFENAC
     Dosage: PRN (ACCORDING TO PRESCRIPTION, 4X A DAY)

REACTIONS (9)
  - Hypothyroid myopathy [Unknown]
  - Raynaud^s phenomenon [Unknown]
  - White blood cell count increased [Unknown]
  - Platelet count increased [Unknown]
  - Joint swelling [Unknown]
  - Gamma-glutamyltransferase increased [Unknown]
  - Mobility decreased [Unknown]
  - Asthenia [Unknown]
  - C-reactive protein increased [Unknown]

NARRATIVE: CASE EVENT DATE: 20240101
